FAERS Safety Report 22151912 (Version 1)
Quarter: 2023Q1

REPORT INFORMATION
  Report Type: Spontaneous
  Country: GB (occurrence: GB)
  Receive Date: 20230329
  Receipt Date: 20230329
  Transmission Date: 20230418
  Serious: Yes (Other)
  Sender: FDA-Public Use
  Company Number: GB-MHRA-MED-202303230549336950-NTSWB

PATIENT
  Age: 28 Year
  Sex: Female

DRUGS (2)
  1. CIPROFLOXACIN [Suspect]
     Active Substance: CIPROFLOXACIN
     Indication: Product used for unknown indication
     Dosage: UNK
     Route: 065
  2. METRONIDAZOLE [Suspect]
     Active Substance: METRONIDAZOLE
     Indication: Product used for unknown indication
     Dosage: UNK
     Route: 065

REACTIONS (9)
  - Illness [Recovered/Resolved]
  - Vision blurred [Recovered/Resolved]
  - Insomnia [Recovered/Resolved]
  - Muscle twitching [Recovering/Resolving]
  - Memory impairment [Recovered/Resolved]
  - Confusional state [Recovered/Resolved]
  - Myalgia [Recovered/Resolved]
  - Muscular weakness [Recovering/Resolving]
  - Maternal exposure during breast feeding [Unknown]

NARRATIVE: CASE EVENT DATE: 20221122
